FAERS Safety Report 8593798-2 (Version None)
Quarter: 2012Q3

REPORT INFORMATION
  Report Type: 
  Country: None (occurrence: None)
  Receive Date: 20120814
  Receipt Date: 20120809
  Transmission Date: 20120928
  Serious: Yes (Hospitalization)
  Sender: FDA-Public Use
  Company Number: JP-VERTEX PHARMACEUTICALS INC.-AE-2012-002363

PATIENT
  Age: 51 Year
  Sex: Male

DRUGS (6)
  1. TELAVIC [Suspect]
     Indication: HEPATITIS C
     Route: 048
     Dates: start: 20120207, end: 20120209
  2. SILECE [Concomitant]
     Route: 048
     Dates: end: 20120220
  3. REBETOL [Concomitant]
     Route: 048
     Dates: start: 20120207
  4. ERIMIN [Concomitant]
     Route: 048
     Dates: end: 20120213
  5. ERIMIN [Concomitant]
     Route: 048
     Dates: start: 20120228
  6. PEG-INTRON [Concomitant]
     Route: 058
     Dates: start: 20120207

REACTIONS (1)
  - RASH PRURITIC [None]
